FAERS Safety Report 7909130-0 (Version None)
Quarter: 2011Q4

REPORT INFORMATION
  Report Type: 
  Country: None (occurrence: None)
  Receive Date: 20111111
  Receipt Date: 20101025
  Transmission Date: 20120403
  Serious: No
  Sender: FDA-Public Use
  Company Number: US-GLAXOSMITHKLINE-A0888644A

PATIENT
  Age: 75 Year
  Sex: Male

DRUGS (2)
  1. COREG [Suspect]
     Indication: CARDIAC DISORDER
     Dosage: 12.5MG TWICE PER DAY
     Route: 048
     Dates: start: 20020101
  2. OTHER MEDICATIONS [Concomitant]

REACTIONS (1)
  - BRONCHITIS [None]
